FAERS Safety Report 7260431-1 (Version None)
Quarter: 2011Q1

REPORT INFORMATION
  Report Type: 
  Country: None (occurrence: None)
  Receive Date: 20110130
  Receipt Date: 20101119
  Transmission Date: 20110831
  Serious: No
  Sender: FDA-Public Use
  Company Number: US-ABBOTT-10P-163-0686649-00

PATIENT
  Sex: Male
  Weight: 104.42 kg

DRUGS (7)
  1. HUMIRA [Suspect]
     Indication: RHEUMATOID ARTHRITIS
     Route: 058
     Dates: start: 20101117
  2. PREDNISONE [Concomitant]
     Indication: PRODUCT USED FOR UNKNOWN INDICATION
     Dosage: 1.5 IN 1 DAY
     Route: 048
     Dates: start: 20100901
  3. NORCO [Concomitant]
     Indication: ARTHRALGIA
     Dosage: 7.5/?, AS NEEDED
     Route: 048
  4. TESTOSTERONE [Concomitant]
     Indication: BLOOD TESTOSTERONE DECREASED
     Dosage: 1 PUMP, 1 IN 1 DAY
     Route: 061
  5. HYDROXYCHLOROQUINE [Concomitant]
     Indication: SYSTEMIC LUPUS ERYTHEMATOSUS
     Dosage: 1 IN 1 DAY, UNKNOWN STRENGTH
     Route: 048
  6. CITALOPRAM [Concomitant]
     Indication: ANXIETY
     Dosage: 20 MG, 1/2 TABLET DAILY
     Route: 048
     Dates: start: 20100901
  7. XANAX [Concomitant]
     Indication: ANXIETY
     Dosage: 1 IN 1 DAY, AS NEEDED
     Route: 048
     Dates: start: 20080101

REACTIONS (4)
  - INJECTION SITE HAEMORRHAGE [None]
  - ABDOMINAL PAIN UPPER [None]
  - RASH [None]
  - DRY SKIN [None]
